FAERS Safety Report 23590803 (Version 7)
Quarter: 2025Q2

REPORT INFORMATION
  Report Type: Spontaneous
  Country: US (occurrence: US)
  Receive Date: 20240304
  Receipt Date: 20250611
  Transmission Date: 20250717
  Serious: Yes (Other)
  Sender: BRISTOL-MYERS SQUIBB COMPANY
  Company Number: US-BRISTOL-MYERS SQUIBB COMPANY-2024-034380

PATIENT
  Age: 72 Year
  Sex: Male
  Weight: 116.57 kg

DRUGS (2)
  1. REVLIMID [Suspect]
     Active Substance: LENALIDOMIDE
     Indication: Plasma cell myeloma
     Dosage: FREQUENCY: 3 WEEKS ON 1 WEEK OFF
     Route: 048
     Dates: start: 20230101
  2. REVLIMID [Suspect]
     Active Substance: LENALIDOMIDE
     Dosage: WEEKS ON AND 1 WEEK OFF
     Route: 048

REACTIONS (6)
  - Paraesthesia [Not Recovered/Not Resolved]
  - Diarrhoea [Unknown]
  - Hypoaesthesia [Not Recovered/Not Resolved]
  - Neuropathy peripheral [Unknown]
  - Contusion [Unknown]
  - Sinusitis [Not Recovered/Not Resolved]
